FAERS Safety Report 11564931 (Version 2)
Quarter: 2015Q4

REPORT INFORMATION
  Report Type: Spontaneous
  Country: US (occurrence: US)
  Receive Date: 20150928
  Receipt Date: 20151124
  Transmission Date: 20160304
  Serious: Yes (Hospitalization)
  Sender: FDA-Public Use
  Company Number: US-EXELIXIS-CABO-13002780

PATIENT
  Age: 73 Year
  Sex: Male

DRUGS (3)
  1. COMETRIQ [Suspect]
     Active Substance: CABOZANTINIB S-MALATE
     Indication: THYROID CANCER
     Dosage: 140 MG, QD
     Route: 048
     Dates: start: 20130504, end: 20130524
  2. COMETRIQ [Suspect]
     Active Substance: CABOZANTINIB S-MALATE
     Dosage: 40 MG, QD
     Route: 048
     Dates: start: 20150508, end: 20150724
  3. COMETRIQ [Suspect]
     Active Substance: CABOZANTINIB S-MALATE
     Dosage: 40 MG, QD
     Route: 048
     Dates: start: 20150821

REACTIONS (6)
  - Intestinal obstruction [Unknown]
  - Weight decreased [Unknown]
  - Feeling hot [Unknown]
  - Malaise [Unknown]
  - Gastrointestinal disorder [Unknown]
  - Rash [Unknown]

NARRATIVE: CASE EVENT DATE: 20130517
